FAERS Safety Report 4811697-6 (Version None)
Quarter: 2005Q4

REPORT INFORMATION
  Report Type: 
  Country: None (occurrence: None)
  Receive Date: 20051025
  Receipt Date: 20051010
  Transmission Date: 20060501
  Serious: Yes (Hospitalization, Other)
  Sender: FDA-Public Use
  Company Number: S04-CAN-07580-02

PATIENT
  Sex: Female
  Weight: 3.69 kg

DRUGS (8)
  1. CELEXA [Suspect]
     Indication: DEPRESSION
     Dosage: 30 MG QD TRANSPLACENTAL
     Route: 064
     Dates: start: 20041104, end: 20050815
  2. CELEXA [Suspect]
     Indication: DEPRESSION
     Dosage: 30 MG QD BF
     Dates: start: 20050815
  3. MULTIVITAMIN WITH FOLIC ACID [Concomitant]
  4. DEMEROL [Concomitant]
  5. EPIDURAL (NOS) [Concomitant]
  6. IRON SUPPLEMENT [Concomitant]
  7. PROSTAGLANDIN GEL [Concomitant]
  8. PENICILLIN-G (PENICILLIN G) [Concomitant]

REACTIONS (8)
  - APGAR SCORE LOW [None]
  - DRUG EXPOSURE DURING PREGNANCY [None]
  - DRUG EXPOSURE VIA BREAST MILK [None]
  - FLATULENCE [None]
  - MECONIUM IN AMNIOTIC FLUID [None]
  - NEONATAL CANDIDA INFECTION [None]
  - RESPIRATORY DISORDER NEONATAL [None]
  - SOMNOLENCE NEONATAL [None]
